FAERS Safety Report 6984120 (Version 3)
Quarter: 2012Q4

REPORT INFORMATION
  Report Type: 
  Country: US (occurrence: US)
  Receive Date: 20060614
  Receipt Date: 20121106
  Transmission Date: 20130627
  Serious: Yes (Other)
  Sender: FDA-Public Use
  Company Number: US-PFIZER INC-2006072112

PATIENT
  Age: 53 Year
  Sex: Female

DRUGS (8)
  1. PROVERA [Suspect]
     Indication: HORMONE REPLACEMENT THERAPY
     Dosage: 2.5 mg, 1x/day
     Route: 048
     Dates: start: 199810, end: 200209
  2. MEDROXYPROGESTERONE ACETATE TABLET [Suspect]
     Indication: HORMONE REPLACEMENT THERAPY
     Dosage: UNK
     Route: 048
     Dates: start: 199907, end: 199909
  3. MEDROXYPROGESTERONE ACETATE [Suspect]
     Dosage: UNK
     Route: 048
     Dates: start: 200006, end: 200008
  4. MEDROXYPROGESTERONE ACETATE [Suspect]
     Dosage: UNK
     Route: 048
     Dates: start: 200106, end: 200112
  5. MEDROXYPROGESTERONE ACETATE [Suspect]
     Dosage: UNK
     Route: 048
     Dates: start: 200209, end: 200211
  6. PREMARIN [Suspect]
     Indication: HORMONE REPLACEMENT THERAPY
     Dosage: UNK
     Route: 048
     Dates: start: 199810, end: 200207
  7. CYCRIN [Suspect]
     Indication: HORMONE REPLACEMENT THERAPY
     Dosage: UNK
  8. BECLOMETHASONE [Concomitant]
     Indication: ALLERGY
     Dosage: UNK
     Dates: start: 19970703, end: 20021201

REACTIONS (1)
  - Breast cancer female [Unknown]
